FAERS Safety Report 9713236 (Version 2)
Quarter: 2013Q4

REPORT INFORMATION
  Report Type: Spontaneous
  Country: US (occurrence: US)
  Receive Date: 20131126
  Receipt Date: 20131126
  Transmission Date: 20140711
  Serious: Yes (Life-Threatening)
  Sender: FDA-Public Use
  Company Number: US-ASTELLAS-2013US009825

PATIENT
  Age: 88 Year
  Sex: Female

DRUGS (2)
  1. LEXISCAN [Suspect]
     Indication: CHEST PAIN
     Route: 042
     Dates: start: 20130830, end: 20130830
  2. LEXISCAN [Suspect]
     Indication: DYSPNOEA

REACTIONS (1)
  - Atrioventricular block [Recovered/Resolved]
